FAERS Safety Report 8083105 (Version 4)
Quarter: 2012Q4

REPORT INFORMATION
  Report Type: 
  Country: JP (occurrence: JP)
  Receive Date: 20110809
  Receipt Date: 20120904
  Transmission Date: 20130627
  Serious: Yes (Life-Threatening, Hospitalization)
  Sender: FDA-Public Use
  Company Number: JP-ASTRAZENECA-2011SE23147

PATIENT
  Sex: Male

DRUGS (41)
  1. MEROPEN [Suspect]
     Indication: PNEUMONIA
     Route: 042
     Dates: start: 20110107, end: 20110124
  2. MEROPEN [Suspect]
     Indication: PNEUMONIA
     Route: 042
     Dates: start: 20110704, end: 20110715
  3. FENTANYL CITRATE [Suspect]
     Indication: STOMATITIS
     Dates: start: 20110102, end: 20110119
  4. VANCOMYCIN HYDROCHLORIDE [Suspect]
     Indication: PNEUMONIA
     Dates: start: 20110107, end: 20110117
  5. AMLODIN [Suspect]
     Indication: HYPERTENSION
     Route: 048
     Dates: start: 20101008, end: 20110217
  6. DIFLUCAN [Suspect]
     Indication: ANTIFUNGAL PROPHYLAXIS
     Route: 048
     Dates: end: 20110111
  7. TAKEPRON [Suspect]
     Indication: GASTROOESOPHAGEAL REFLUX DISEASE
     Route: 048
     Dates: end: 20110217
  8. TAKEPRON [Suspect]
     Indication: GASTROOESOPHAGEAL REFLUX DISEASE
     Route: 048
     Dates: start: 20110526, end: 20110719
  9. BAKTAR [Suspect]
     Indication: ANTIFUNGAL PROPHYLAXIS
     Route: 048
     Dates: end: 20110128
  10. BAKTAR [Suspect]
     Indication: ANTIFUNGAL PROPHYLAXIS
     Route: 048
     Dates: start: 20110715
  11. ZOVIRAX [Suspect]
     Indication: PROPHYLAXIS
     Route: 048
     Dates: end: 20110128
  12. ZOVIRAX [Suspect]
     Indication: PROPHYLAXIS
     Route: 048
     Dates: start: 20110712, end: 20110719
  13. ZYLORIC [Suspect]
     Indication: PROPHYLAXIS
     Route: 048
     Dates: end: 20110120
  14. ZYLORIC [Suspect]
     Indication: PROPHYLAXIS
     Route: 048
     Dates: start: 20110705, end: 20110719
  15. LIPIDIL [Suspect]
     Indication: HYPERLIPIDAEMIA
     Route: 048
     Dates: end: 20110126
  16. ONCOVIN [Suspect]
     Indication: ADULT T-CELL LYMPHOMA/LEUKAEMIA
     Dosage: 1 MILLIGRAM/SQ.METER
     Dates: start: 20101007, end: 20101222
  17. ENDOXAN [Suspect]
     Indication: ADULT T-CELL LYMPHOMA/LEUKAEMIA
     Dosage: 350 MILLIGRAM/SQ.METER
     Dates: start: 20101007, end: 20101222
  18. PREDNISOLONE [Suspect]
     Indication: ADULT T-CELL LYMPHOMA/LEUKAEMIA
     Dosage: 40 MILLIGRAM/SQ.METER
     Dates: start: 20101007, end: 20101229
  19. OTHER ANTITUMOR AGENTS [Suspect]
     Indication: ADULT T-CELL LYMPHOMA/LEUKAEMIA
     Dosage: 1 MILLIGRAM/KILOGRAM
     Dates: start: 20101008, end: 20101221
  20. CYMERIN [Suspect]
     Indication: ADULT T-CELL LYMPHOMA/LEUKAEMIA
     Dosage: 60 MILLIGRAM/SQ.METER
     Dates: start: 20101014, end: 20101229
  21. BIOFERMIN R [Suspect]
     Indication: PROCTITIS
     Dates: start: 20101022, end: 20110217
  22. FILDESIN [Suspect]
     Indication: ADULT T-CELL LYMPHOMA/LEUKAEMIA
     Dosage: 2.4 MILLIGRAM/SQ.METER
     Dates: start: 20101026, end: 20101208
  23. CARBOPLATIN [Suspect]
     Indication: ADULT T-CELL LYMPHOMA/LEUKAEMIA
     Dosage: 250 MILLIGRAM/SQ.METER
     Dates: start: 20101026, end: 20101208
  24. LASTET [Suspect]
     Indication: ADULT T-CELL LYMPHOMA/LEUKAEMIA
     Dosage: 100 MILLIGRAM/SQ.METER
     Dates: start: 20101026, end: 20101208
  25. METHOTREXATE [Suspect]
     Indication: ADULT T-CELL LYMPHOMA/LEUKAEMIA
     Dates: start: 20101118, end: 20101118
  26. CYLOCIDE [Suspect]
     Indication: ADULT T-CELL LYMPHOMA/LEUKAEMIA
     Dates: start: 20101118, end: 20101118
  27. PREDONINE [Suspect]
     Indication: ADULT T-CELL LYMPHOMA/LEUKAEMIA
     Dosage: 10 MILLIGRAM/SQ.METER
     Dates: start: 20101118, end: 20101118
  28. MAGMITT [Suspect]
     Indication: CONSTIPATION
     Route: 048
     Dates: start: 20110107, end: 20110110
  29. PANTOSIN [Suspect]
     Indication: CONSTIPATION
     Route: 048
     Dates: start: 20110107, end: 20110110
  30. LYRICA [Suspect]
     Indication: PAIN
     Route: 048
     Dates: start: 20110629, end: 20110719
  31. BARACLUDE [Suspect]
     Indication: HEPATITIS B
     Route: 065
     Dates: start: 20110629, end: 20110719
  32. ADRIACIN [Suspect]
     Indication: ADULT T-CELL LYMPHOMA/LEUKAEMIA
     Dosage: 30 MILLIGRAM/SQ.METER
     Dates: start: 20101229, end: 20101229
  33. ADRIACIN [Suspect]
     Indication: ADULT T-CELL LYMPHOMA/LEUKAEMIA
     Dosage: 40 MILLIGRAM/SQ.METER
     Dates: start: 20101007, end: 20101007
  34. ADRIACIN [Suspect]
     Indication: ADULT T-CELL LYMPHOMA/LEUKAEMIA
     Dosage: 30 MILLIGRAM/SQ.METER
     Dates: start: 20101014, end: 20101014
  35. ADRIACIN [Suspect]
     Indication: ADULT T-CELL LYMPHOMA/LEUKAEMIA
     Dosage: 40 MILLIGRAM/SQ.METER
     Dates: start: 20101116, end: 20101116
  36. ADRIACIN [Suspect]
     Indication: ADULT T-CELL LYMPHOMA/LEUKAEMIA
     Dosage: 30 MILLIGRAM/SQ.METER
     Dates: start: 20101124, end: 20101124
  37. ADRIACIN [Suspect]
     Indication: ADULT T-CELL LYMPHOMA/LEUKAEMIA
     Dosage: 40 MILLIGRAM/SQ.METER
     Dates: start: 20101222, end: 20101222
  38. SLOW-K [Concomitant]
     Route: 048
     Dates: start: 20110630, end: 20110724
  39. VFEND [Concomitant]
     Dates: start: 20110704, end: 20110718
  40. TARGOCID [Concomitant]
     Dates: start: 20110506, end: 20110714
  41. CIPROXAN [Concomitant]
     Dates: start: 20110715, end: 20110718

REACTIONS (27)
  - Interstitial lung disease [Recovering/Resolving]
  - Pneumonia [Recovering/Resolving]
  - Herpes zoster [Unknown]
  - Renal disorder [Unknown]
  - Anaemia [Unknown]
  - Thrombocytopenia [Unknown]
  - Leukopenia [Unknown]
  - Neutropenia [Unknown]
  - Lymphopenia [Unknown]
  - Blood albumin decreased [Unknown]
  - Alanine aminotransferase increased [Unknown]
  - Hyperglycaemia [Unknown]
  - Blood sodium decreased [Unknown]
  - Blood potassium decreased [Unknown]
  - Febrile neutropenia [Unknown]
  - Constipation [Unknown]
  - Headache [Unknown]
  - Stomatitis [Unknown]
  - Gastroenteritis [Unknown]
  - Balanoposthitis [Unknown]
  - Oedema [Unknown]
  - Cytomegalovirus enterocolitis [Unknown]
  - Antithrombin III decreased [Unknown]
  - Blood pressure increased [Unknown]
  - Blood fibrinogen decreased [Unknown]
  - Nausea [Unknown]
  - Alopecia [Unknown]
